FAERS Safety Report 5252455-0 (Version None)
Quarter: 2007Q1

REPORT INFORMATION
  Report Type: 
  Country: None (occurrence: None)
  Receive Date: 20070301
  Receipt Date: 20070221
  Transmission Date: 20070707
  Serious: Yes (Hospitalization)
  Sender: FDA-Public Use
  Company Number: FR-BRISTOL-MYERS SQUIBB COMPANY-13689856

PATIENT
  Age: 60 Year
  Sex: Male

DRUGS (9)
  1. ELISOR TABS 20 MG [Suspect]
     Route: 048
  2. TRIATEC [Suspect]
     Route: 048
     Dates: end: 20070126
  3. OFLOCET [Suspect]
     Route: 048
     Dates: start: 20070120, end: 20070125
  4. AUGMENTIN '125' [Suspect]
     Route: 042
     Dates: start: 20070119
  5. CORDARONE [Suspect]
     Route: 048
     Dates: start: 20070123, end: 20070126
  6. ALDACTONE [Suspect]
     Route: 048
     Dates: end: 20070126
  7. SINTROM [Concomitant]
  8. LASIX [Concomitant]
  9. DIFFU-K [Concomitant]

REACTIONS (4)
  - BLOOD CREATININE INCREASED [None]
  - CARDIAC FAILURE [None]
  - CHRONIC OBSTRUCTIVE PULMONARY DISEASE [None]
  - TRANSAMINASES INCREASED [None]
